FAERS Safety Report 17148866 (Version 1)
Quarter: 2019Q4

REPORT INFORMATION
  Report Type: Spontaneous
  Country: US (occurrence: US)
  Receive Date: 20191213
  Receipt Date: 20191213
  Transmission Date: 20200122
  Serious: No
  Sender: FDA-Public Use
  Company Number: US-UCBSA-2015043326

PATIENT
  Age: 58 Year
  Sex: Female

DRUGS (2)
  1. VIMPAT [Suspect]
     Active Substance: LACOSAMIDE
     Indication: PRODUCT USED FOR UNKNOWN INDICATION
     Dosage: UNK
  2. VIMPAT [Suspect]
     Active Substance: LACOSAMIDE
     Dosage: DOSE WAS INCREASED 2 MONTHS AGO
     Dates: start: 2015

REACTIONS (3)
  - Tongue dry [Unknown]
  - Seizure [Unknown]
  - Tongue discomfort [Unknown]
